FAERS Safety Report 4268054-3 (Version None)
Quarter: 2004Q1

REPORT INFORMATION
  Report Type: 
  Country: None (occurrence: None)
  Receive Date: 20040109
  Receipt Date: 20040109
  Transmission Date: 20041129
  Serious: Yes (Hospitalization)
  Sender: FDA-Public Use
  Company Number: None

PATIENT
  Sex: Male

DRUGS (2)
  1. GEMCITABINE [Suspect]
     Indication: PANCREATIC CARCINOMA
     Dosage: 600 MG/M2 INTRAVENOUS
     Route: 042
     Dates: start: 20020818, end: 20040106
  2. IRINOTECAN [Suspect]
     Indication: PANCREATIC CARCINOMA
     Dosage: 56 MG/M2 INTRAVENOUS
     Route: 042
     Dates: start: 20020818, end: 20040106

REACTIONS (2)
  - ABDOMINAL DISCOMFORT [None]
  - BLOOD BILIRUBIN INCREASED [None]
